FAERS Safety Report 6068055-9 (Version None)
Quarter: 2009Q1

REPORT INFORMATION
  Report Type: 
  Country: None (occurrence: None)
  Receive Date: 20090206
  Receipt Date: 20090130
  Transmission Date: 20090719
  Serious: Yes (Life-Threatening, Hospitalization, Disabling)
  Sender: FDA-Public Use
  Company Number: FR-AMGEN-US330080

PATIENT
  Sex: Female
  Weight: 70 kg

DRUGS (5)
  1. ENBREL [Suspect]
     Indication: ANKYLOSING SPONDYLITIS
     Route: 058
     Dates: start: 20070901, end: 20081001
  2. BISOPROLOL FUMARATE [Concomitant]
     Dosage: UNKNOWN
     Route: 048
  3. FENOFIBRATE [Concomitant]
     Dosage: UNKNOWN
     Route: 048
  4. LAMALINE [Concomitant]
     Dosage: UNKNOWN
     Route: 065
  5. DIACEREIN [Concomitant]
     Route: 065

REACTIONS (10)
  - ANURIA [None]
  - ARRHYTHMIA [None]
  - CARDIAC ARREST [None]
  - CONDITION AGGRAVATED [None]
  - GASTROINTESTINAL NECROSIS [None]
  - NERVOUS SYSTEM DISORDER [None]
  - PANCREATITIS ACUTE [None]
  - RENAL FAILURE ACUTE [None]
  - RESPIRATORY FAILURE [None]
  - SEPSIS [None]
